FAERS Safety Report 7208754-6 (Version None)
Quarter: 2011Q1

REPORT INFORMATION
  Report Type: 
  Country: None (occurrence: None)
  Receive Date: 20110104
  Receipt Date: 20101229
  Transmission Date: 20110831
  Serious: Yes (Hospitalization, Other)
  Sender: FDA-Public Use
  Company Number: US-PFIZER INC-2010181506

PATIENT
  Sex: Male
  Weight: 72.562 kg

DRUGS (2)
  1. INSULIN [Concomitant]
     Indication: TYPE 2 DIABETES MELLITUS
     Dosage: UNK
  2. LIPITOR [Suspect]
     Indication: CORONARY ARTERY BYPASS
     Dosage: 10 MG, DAILY
     Route: 048
     Dates: start: 20020101, end: 20101228

REACTIONS (7)
  - PAIN [None]
  - RENAL IMPAIRMENT [None]
  - HYPOTENSION [None]
  - PAIN IN EXTREMITY [None]
  - MYALGIA [None]
  - DIABETES MELLITUS INADEQUATE CONTROL [None]
  - ARTHRALGIA [None]
